FAERS Safety Report 13448612 (Version 1)
Quarter: 2017Q2

REPORT INFORMATION
  Report Type: Spontaneous
  Country: US (occurrence: US)
  Receive Date: 20170417
  Receipt Date: 20170417
  Transmission Date: 20170830
  Serious: No
  Sender: FDA-Public Use
  Company Number: US-BAUSCH-BL-2017-002773

PATIENT
  Age: 77 Year
  Sex: Male

DRUGS (1)
  1. FLUNISOLIDE NASAL SOLUTION USP 0.025% [Suspect]
     Active Substance: FLUNISOLIDE
     Indication: NASAL DISORDER
     Dosage: TWICE DAILY IN EACH NOSTRIL
     Route: 045
     Dates: start: 2011, end: 20170127

REACTIONS (5)
  - Nasal congestion [Recovering/Resolving]
  - Nasal obstruction [Recovering/Resolving]
  - Rhinorrhoea [Recovering/Resolving]
  - Nasal discomfort [Recovering/Resolving]
  - Product colour issue [Recovering/Resolving]

NARRATIVE: CASE EVENT DATE: 20170127
